FAERS Safety Report 8293476-3 (Version None)
Quarter: 2012Q2

REPORT INFORMATION
  Report Type: 
  Country: None (occurrence: None)
  Receive Date: 20120417
  Receipt Date: 20120404
  Transmission Date: 20120825
  Serious: Yes (Other)
  Sender: FDA-Public Use
  Company Number: DK-MYLANLABS-2012S1007477

PATIENT
  Age: 26 Year
  Sex: Female

DRUGS (4)
  1. LEUCOVORIN CALCIUM [Suspect]
     Indication: COLON CANCER METASTATIC
     Dosage: 400 MG/M2; BIWEEKLY, 10 COURSES
     Route: 065
  2. OXALIPLATIN [Suspect]
     Indication: COLON CANCER METASTATIC
     Dosage: 85 MG/M2 AS 2-H INFUSION; BIWEEKLY, 10 COURSES
     Route: 050
  3. FLUOROURACIL [Suspect]
     Dosage: 2400 MG/M2 46-H INFUSION; BIWEEKLY, 10 COURSES
     Route: 050
  4. FLUOROURACIL [Suspect]
     Indication: COLON CANCER METASTATIC
     Dosage: 400 MG/M2 BOLUS; THEN 2400 MG/M2 INFUSION; BIWEEKLY, 10 COURSES
     Route: 050

REACTIONS (3)
  - NORMAL NEWBORN [None]
  - FOETAL EXPOSURE DURING PREGNANCY [None]
  - PREMATURE RUPTURE OF MEMBRANES [None]
